FAERS Safety Report 21246822 (Version 2)
Quarter: 2022Q3

REPORT INFORMATION
  Report Type: Spontaneous
  Country: US (occurrence: US)
  Receive Date: 20220824
  Receipt Date: 20220828
  Transmission Date: 20221026
  Serious: No
  Sender: FDA-Public Use
  Company Number: US-ELI_LILLY_AND_COMPANY-US202208006708

PATIENT
  Sex: Male

DRUGS (10)
  1. HUMULIN R [Suspect]
     Active Substance: INSULIN HUMAN
     Indication: Diabetes mellitus
     Dosage: UNK UNK, OTHER (9-10 TIMES A DAY)
     Route: 065
  2. HUMULIN R [Suspect]
     Active Substance: INSULIN HUMAN
     Dosage: UNK UNK, OTHER (9-10 TIMES A DAY/8,9,AND 10 UNITS EACH DAY)
     Route: 065
  3. HUMULIN N [Suspect]
     Active Substance: INSULIN HUMAN
     Indication: Diabetes mellitus
     Dosage: 16 U, DAILY
     Route: 065
  4. HUMULIN N [Suspect]
     Active Substance: INSULIN HUMAN
     Dosage: 12 U, DAILY
     Route: 065
  5. HUMULIN N [Suspect]
     Active Substance: INSULIN HUMAN
     Dosage: 10 U, DAILY
     Route: 065
  6. HUMULIN N [Suspect]
     Active Substance: INSULIN HUMAN
     Dosage: 10 U, DAILY
     Route: 065
  7. HUMULIN N [Suspect]
     Active Substance: INSULIN HUMAN
     Dosage: 12 U, DAILY (10-12 UNITS)
     Route: 065
     Dates: end: 20220808
  8. HUMULIN N [Suspect]
     Active Substance: INSULIN HUMAN
     Dosage: 14 U, DAILY
     Route: 065
     Dates: end: 20220808
  9. HUMULIN N [Suspect]
     Active Substance: INSULIN HUMAN
     Dosage: 8 U, DAILY
     Route: 065
     Dates: end: 20220808
  10. CANNABIS SATIVA SUBSP. INDICA TOP [Suspect]
     Active Substance: CANNABIS SATIVA SUBSP. INDICA TOP
     Indication: Product used for unknown indication
     Dosage: UNK UNK, UNKNOWN
     Route: 065

REACTIONS (9)
  - Illness [Unknown]
  - Feeling abnormal [Unknown]
  - Dizziness [Recovered/Resolved]
  - Pain in extremity [Unknown]
  - Gait inability [Unknown]
  - Inflammation [Recovering/Resolving]
  - Hunger [Recovering/Resolving]
  - Blood glucose increased [Unknown]
  - Glycosylated haemoglobin decreased [Unknown]
